FAERS Safety Report 9536346 (Version 1)
Quarter: 2013Q3

REPORT INFORMATION
  Report Type: Spontaneous
  Country: US (occurrence: None)
  Receive Date: 20130917
  Receipt Date: 20130917
  Transmission Date: 20140515
  Serious: Yes (Life-Threatening, Disabling, Other)
  Sender: FDA-Public Use
  Company Number: None

PATIENT
  Age: 71 Year
  Sex: Female
  Weight: 63.5 kg

DRUGS (6)
  1. PROLIA [Suspect]
     Indication: RENAL FAILURE
     Dosage: EVERY 6 MONTHS
     Dates: start: 20120712, end: 20130713
  2. PROLIA [Suspect]
     Indication: BLOOD CALCIUM ABNORMAL
     Dosage: EVERY 6 MONTHS
     Dates: start: 20120712, end: 20130713
  3. FUROSEMIDE [Concomitant]
  4. AMBIEN [Concomitant]
  5. NORCO [Concomitant]
  6. PRENATAL VITAMINS [Concomitant]

REACTIONS (17)
  - Malaise [None]
  - Confusional state [None]
  - Memory impairment [None]
  - Thinking abnormal [None]
  - Disturbance in attention [None]
  - Activities of daily living impaired [None]
  - Arthralgia [None]
  - Abdominal pain upper [None]
  - Back pain [None]
  - Headache [None]
  - Mental disorder [None]
  - Feeling of body temperature change [None]
  - Visual impairment [None]
  - Depression [None]
  - Impaired driving ability [None]
  - Sleep disorder [None]
  - Gait disturbance [None]
